FAERS Safety Report 11588478 (Version 1)
Quarter: 2015Q4

REPORT INFORMATION
  Report Type: Spontaneous
  Country: US (occurrence: None)
  Receive Date: 20151001
  Receipt Date: 20151001
  Transmission Date: 20160304
  Serious: No
  Sender: FDA-Public Use
  Company Number: None

PATIENT
  Age: 2 Year
  Sex: Male
  Weight: 15.88 kg

DRUGS (2)
  1. OMNICEF [Suspect]
     Active Substance: CEFDINIR
     Indication: OROPHARYNGEAL PAIN
     Route: 048
  2. OMNICEF [Suspect]
     Active Substance: CEFDINIR
     Indication: EAR INFECTION
     Route: 048

REACTIONS (5)
  - Mental disorder [None]
  - Mood altered [None]
  - Autism [None]
  - Disturbance in attention [None]
  - Drug hypersensitivity [None]

NARRATIVE: CASE EVENT DATE: 20130130
